FAERS Safety Report 23284969 (Version 1)
Quarter: 2023Q4

REPORT INFORMATION
  Report Type: Spontaneous
  Country: US (occurrence: US)
  Receive Date: 20231211
  Receipt Date: 20231211
  Transmission Date: 20240110
  Serious: Yes (Disabling, Other)
  Sender: FDA-Public Use
  Company Number: US-MIRATI-MT2023PM04110

PATIENT
  Sex: Female

DRUGS (3)
  1. KRAZATI [Suspect]
     Active Substance: ADAGRASIB
     Indication: Lung neoplasm malignant
     Dosage: 600 MG, BID
     Route: 048
     Dates: start: 20230520, end: 20230619
  2. KRAZATI [Suspect]
     Active Substance: ADAGRASIB
     Indication: Non-small cell lung cancer stage IV
     Dosage: 400 MG, BID
     Route: 048
     Dates: start: 20230711
  3. KRAZATI [Suspect]
     Active Substance: ADAGRASIB
     Dosage: ON MON, THURS 600 MG IN AM AND 400 MG IN PM
     Route: 048
     Dates: start: 20231211

REACTIONS (16)
  - Neutrophil count decreased [Not Recovered/Not Resolved]
  - Neutropenia [Recovered/Resolved]
  - Fatigue [Recovered/Resolved]
  - Somnolence [Recovered/Resolved]
  - Taste disorder [Not Recovered/Not Resolved]
  - Hypogeusia [Not Recovered/Not Resolved]
  - Gingival pain [Not Recovered/Not Resolved]
  - Diarrhoea [Not Recovered/Not Resolved]
  - Diarrhoea [Recovering/Resolving]
  - Abdominal pain upper [Not Recovered/Not Resolved]
  - Fatigue [Not Recovered/Not Resolved]
  - Abdominal pain upper [Not Recovered/Not Resolved]
  - Diarrhoea [Not Recovered/Not Resolved]
  - Taste disorder [Recovered/Resolved]
  - Gingival pain [Recovered/Resolved]
  - Gingival bleeding [Recovered/Resolved]

NARRATIVE: CASE EVENT DATE: 20230520
